FAERS Safety Report 17771551 (Version 1)
Quarter: 2020Q2

REPORT INFORMATION
  Report Type: Spontaneous
  Country: DE (occurrence: DE)
  Receive Date: 20200512
  Receipt Date: 20200512
  Transmission Date: 20200714
  Serious: Yes (Other)
  Sender: FDA-Public Use
  Company Number: NVSC2020DE127965

PATIENT
  Sex: Female

DRUGS (3)
  1. CEFTRIAXON [Suspect]
     Active Substance: CEFTRIAXONE
     Indication: STAPHYLOCOCCAL BACTERAEMIA
     Route: 065
     Dates: start: 201910
  2. INFECTOFOS [Suspect]
     Active Substance: FOSFOMYCIN SODIUM
     Indication: STAPHYLOCOCCAL BACTERAEMIA
     Route: 042
     Dates: start: 201910
  3. RIFAMPICIN [Suspect]
     Active Substance: RIFAMPIN
     Indication: STAPHYLOCOCCAL BACTERAEMIA
     Dosage: UNK
     Route: 065
     Dates: start: 201910

REACTIONS (1)
  - Neuropathy peripheral [Not Recovered/Not Resolved]
